FAERS Safety Report 6807592-3 (Version None)
Quarter: 2010Q2

REPORT INFORMATION
  Report Type: 
  Country: None (occurrence: None)
  Receive Date: 20100629
  Receipt Date: 20081231
  Transmission Date: 20101027
  Serious: No
  Sender: FDA-Public Use
  Company Number: US-PFIZER INC-2008096131

PATIENT
  Sex: Male
  Weight: 108 kg

DRUGS (4)
  1. VIAGRA [Suspect]
     Indication: ERECTILE DYSFUNCTION
     Route: 048
     Dates: start: 20081108, end: 20081108
  2. PROTONIX [Concomitant]
  3. FOLIC ACID [Concomitant]
  4. PLAVIX [Concomitant]

REACTIONS (2)
  - ERECTILE DYSFUNCTION [None]
  - PENILE PAIN [None]
